FAERS Safety Report 21819658 (Version 2)
Quarter: 2023Q1

REPORT INFORMATION
  Report Type: Spontaneous
  Country: US (occurrence: US)
  Receive Date: 20230104
  Receipt Date: 20230111
  Transmission Date: 20230418
  Serious: No
  Sender: FDA-Public Use
  Company Number: US-SA-SAC20230103000220

PATIENT
  Age: 81 Year
  Sex: Male

DRUGS (3)
  1. CABLIVI [Suspect]
     Active Substance: CAPLACIZUMAB-YHDP
     Indication: Thrombotic microangiopathy
     Dosage: 11 MG, QD
     Route: 058
     Dates: start: 20221223
  2. TRAZODONE HYDROCHLORIDE [Suspect]
     Active Substance: TRAZODONE HYDROCHLORIDE
     Dosage: UNK
  3. SEROQUEL [Suspect]
     Active Substance: QUETIAPINE FUMARATE
     Dosage: 25 MG DAILY AS NEEDED

REACTIONS (14)
  - Feeling abnormal [Unknown]
  - Incoherent [Unknown]
  - Muscle tone disorder [Unknown]
  - Skin ulcer [Unknown]
  - Movement disorder [Unknown]
  - Gait disturbance [Unknown]
  - Weight decreased [Unknown]
  - Rash [Unknown]
  - Trance [Unknown]
  - Asthenia [Unknown]
  - Platelet count abnormal [Unknown]
  - Speech disorder [Unknown]
  - Hepatic enzyme increased [Unknown]
  - Product use in unapproved indication [Unknown]

NARRATIVE: CASE EVENT DATE: 20221223
